FAERS Safety Report 6500307-8 (Version None)
Quarter: 2009Q4

REPORT INFORMATION
  Report Type: 
  Country: None (occurrence: None)
  Receive Date: 20091216
  Receipt Date: 20091207
  Transmission Date: 20100525
  Serious: Yes (Other)
  Sender: FDA-Public Use
  Company Number: SE-ROCHE-673717

PATIENT
  Age: 35 Year
  Sex: Female

DRUGS (2)
  1. ROACCUTAN [Suspect]
     Indication: ACNE
     Dosage: DRUG: ROACCUTAN 60 MG.
     Route: 065
     Dates: start: 20090901
  2. DIANE [Suspect]
     Indication: CONTRACEPTION
     Route: 065
     Dates: start: 20090901

REACTIONS (3)
  - CHEST PAIN [None]
  - DYSPNOEA [None]
  - PULMONARY EMBOLISM [None]
